FAERS Safety Report 25503634 (Version 1)
Quarter: 2025Q3

REPORT INFORMATION
  Report Type: Spontaneous
  Country: US (occurrence: US)
  Receive Date: 20250702
  Receipt Date: 20250702
  Transmission Date: 20251021
  Serious: No
  Sender: SCILEX PHARMACEUTICALS INC.
  Company Number: SCLX2400153

PATIENT
  Sex: Female

DRUGS (1)
  1. ELYXYB [Suspect]
     Active Substance: CELECOXIB
     Indication: Migraine
     Route: 048

REACTIONS (2)
  - Product complaint [Unknown]
  - Product dose omission issue [Unknown]
